FAERS Safety Report 17422975 (Version 3)
Quarter: 2020Q2

REPORT INFORMATION
  Report Type: Spontaneous
  Country: RU (occurrence: RU)
  Receive Date: 20200216
  Receipt Date: 20200424
  Transmission Date: 20200713
  Serious: Yes (Other)
  Sender: FDA-Public Use
  Company Number: RU-BIOGEN-2020BI00838362

PATIENT
  Age: 38 Year
  Sex: Female
  Weight: 40 kg

DRUGS (3)
  1. PLEGRIDY [Suspect]
     Active Substance: PEGINTERFERON BETA-1A
     Indication: RELAPSING-REMITTING MULTIPLE SCLEROSIS
     Route: 065
     Dates: start: 20191022
  2. PLEGRIDY [Suspect]
     Active Substance: PEGINTERFERON BETA-1A
     Route: 065
  3. PLEGRIDY [Suspect]
     Active Substance: PEGINTERFERON BETA-1A
     Route: 065
     Dates: end: 20200103

REACTIONS (10)
  - Pupillary reflex impaired [Unknown]
  - Hemianaesthesia [Unknown]
  - Binocular eye movement disorder [Unknown]
  - Lymphadenopathy [Not Recovered/Not Resolved]
  - Nystagmus [Unknown]
  - Muscle spasticity [Unknown]
  - Rash [Unknown]
  - Influenza like illness [Unknown]
  - Monoparesis [Unknown]
  - Clonus [Unknown]

NARRATIVE: CASE EVENT DATE: 20200103
